FAERS Safety Report 19037402 (Version 1)
Quarter: 2021Q1

REPORT INFORMATION
  Report Type: Spontaneous
  Country: US (occurrence: US)
  Receive Date: 20210322
  Receipt Date: 20210322
  Transmission Date: 20210420
  Serious: Yes (Hospitalization)
  Sender: FDA-Public Use
  Company Number: US-SA-2021SA090187

PATIENT
  Age: 82 Year
  Sex: Female
  Weight: 98.4 kg

DRUGS (7)
  1. TYVASO [Concomitant]
     Active Substance: TREPROSTINIL
     Indication: PULMONARY ARTERIAL HYPERTENSION
     Dosage: UNK, Q3M
     Route: 055
     Dates: start: 20200731
  2. TYVASO [Concomitant]
     Active Substance: TREPROSTINIL
     Dosage: 84 ?G, QID, INHALATION
     Route: 055
  3. TYVASO [Concomitant]
     Active Substance: TREPROSTINIL
     Dosage: UNK, INHALATION
     Route: 055
  4. DULCOLAX NOS [Suspect]
     Active Substance: BISACODYL OR DOCUSATE SODIUM
     Indication: CONSTIPATION
     Dosage: UNK, QD
  5. TYVASO [Concomitant]
     Active Substance: TREPROSTINIL
     Dosage: 72 ?G, QID, INHALATION
     Route: 055
  6. TYVASO [Concomitant]
     Active Substance: TREPROSTINIL
     Dosage: 60?120 ?G, QID, INHALATION
     Route: 055
  7. AMBRISENTAN [Concomitant]
     Active Substance: AMBRISENTAN

REACTIONS (9)
  - Oedema peripheral [Unknown]
  - Urine output decreased [Unknown]
  - Sleep disorder [Unknown]
  - Swelling [Unknown]
  - Back pain [Unknown]
  - Abdominal pain lower [Unknown]
  - Dyspnoea [Unknown]
  - Diarrhoea [Recovered/Resolved]
  - Renal disorder [Unknown]
